FAERS Safety Report 23306772 (Version 2)
Quarter: 2024Q2

REPORT INFORMATION
  Report Type: Spontaneous
  Country: JP (occurrence: JP)
  Receive Date: 20231218
  Receipt Date: 20240621
  Transmission Date: 20240717
  Serious: Yes (Other)
  Sender: FDA-Public Use
  Company Number: JP-GLAXOSMITHKLINE-JP2023JPN173474

PATIENT

DRUGS (4)
  1. BENLYSTA [Suspect]
     Active Substance: BELIMUMAB
     Indication: Gene mutation
     Dosage: 10 MG/KG, Q4W
     Dates: start: 20220420
  2. BENLYSTA [Suspect]
     Active Substance: BELIMUMAB
     Indication: Aicardi-Goutieres syndrome
  3. BENLYSTA [Suspect]
     Active Substance: BELIMUMAB
     Indication: Systemic lupus erythematosus
  4. PREDONINE [Concomitant]
     Active Substance: PREDNISOLONE
     Indication: Systemic lupus erythematosus
     Dosage: UNK

REACTIONS (3)
  - Chronic cutaneous lupus erythematosus [Recovered/Resolved]
  - Erythema [Recovered/Resolved]
  - Pernio-like erythema [Recovered/Resolved]
